FAERS Safety Report 11714821 (Version 1)
Quarter: 2015Q4

REPORT INFORMATION
  Report Type: Spontaneous
  Country: IT (occurrence: IT)
  Receive Date: 20151109
  Receipt Date: 20151109
  Transmission Date: 20160304
  Serious: Yes (Other)
  Sender: FDA-Public Use
  Company Number: PHHY2015IT142949

PATIENT
  Sex: Male
  Weight: 85 kg

DRUGS (8)
  1. FUROSEMIDE. [Suspect]
     Active Substance: FUROSEMIDE
     Indication: DIURETIC THERAPY
     Dosage: 40 MG, UNK
     Route: 065
  2. PROPOFOL. [Concomitant]
     Active Substance: PROPOFOL
     Indication: ANAESTHESIA
     Route: 041
  3. ENOXAPARIN [Concomitant]
     Active Substance: ENOXAPARIN
     Indication: PRODUCT USED FOR UNKNOWN INDICATION
     Route: 065
  4. REMIFENTANIL [Interacting]
     Active Substance: REMIFENTANIL
     Indication: ANALGESIC THERAPY
     Dosage: UNK
     Route: 041
  5. LEVOFLOXACIN. [Concomitant]
     Active Substance: LEVOFLOXACIN
     Indication: PRODUCT USED FOR UNKNOWN INDICATION
     Dosage: 500 MG, UNK
     Route: 065
  6. HYDROCHLOROTHIAZIDE. [Interacting]
     Active Substance: HYDROCHLOROTHIAZIDE
     Indication: HYPERTENSION
     Dosage: 12.5 MG, QD
     Route: 065
  7. ZOFENOPRIL [Interacting]
     Active Substance: ZOFENOPRIL
     Indication: HYPERTENSION
     Route: 065
  8. OMEPRAZOLE. [Concomitant]
     Active Substance: OMEPRAZOLE
     Indication: PRODUCT USED FOR UNKNOWN INDICATION
     Route: 065

REACTIONS (3)
  - Drug interaction [Recovered/Resolved]
  - Hypotension [Recovered/Resolved]
  - Cardiac failure [Recovered/Resolved]
